FAERS Safety Report 8201532-0 (Version None)
Quarter: 2012Q1

REPORT INFORMATION
  Report Type: 
  Country: None (occurrence: None)
  Receive Date: 20120312
  Receipt Date: 20120214
  Transmission Date: 20120608
  Serious: Yes (Hospitalization)
  Sender: FDA-Public Use
  Company Number: FR-VIIV HEALTHCARE LIMITED-B0782144A

PATIENT
  Sex: Male
  Weight: 68 kg

DRUGS (6)
  1. ABACAVIR SULFATE/LAMIVUDINE [Suspect]
     Indication: HIV INFECTION
     Dosage: 1TAB PER DAY
     Route: 048
     Dates: start: 20111122, end: 20111205
  2. VALGANCICLOVIR HCL [Concomitant]
     Indication: CYTOMEGALOVIRUS INFECTION
     Dosage: 2TAB TWICE PER DAY
     Route: 048
     Dates: start: 20111107, end: 20111205
  3. REYATAZ [Concomitant]
     Route: 065
     Dates: start: 20111215
  4. NORVIR [Concomitant]
     Indication: HIV INFECTION
     Dosage: 1TAB PER DAY
     Route: 048
     Dates: start: 20111122, end: 20111205
  5. PREZISTA [Concomitant]
     Indication: HIV INFECTION
     Dosage: 800MG PER DAY
     Route: 048
     Dates: start: 20111122, end: 20111205
  6. BACTRIM DS [Concomitant]
     Indication: PNEUMOCYSTIS JIROVECI INFECTION
     Dosage: 2TAB THREE TIMES PER DAY
     Route: 048
     Dates: start: 20111107

REACTIONS (5)
  - HEPATOCELLULAR INJURY [None]
  - TOXIC SKIN ERUPTION [None]
  - RASH [None]
  - PYREXIA [None]
  - FATIGUE [None]
